FAERS Safety Report 6454438-1 (Version None)
Quarter: 2009Q4

REPORT INFORMATION
  Report Type: 
  Country: None (occurrence: None)
  Receive Date: 20091124
  Receipt Date: 20091118
  Transmission Date: 20100525
  Serious: Yes (Other)
  Sender: FDA-Public Use
  Company Number: PHHY2009JP50940

PATIENT
  Age: 6 Year
  Sex: Male

DRUGS (2)
  1. CYCLOSPORINE [Suspect]
     Indication: CORD BLOOD TRANSPLANT THERAPY
     Dosage: UNK
     Route: 048
     Dates: start: 20020101, end: 20020901
  2. SANDIMMUNE [Suspect]
     Dosage: UNK
     Route: 041
     Dates: start: 20030801, end: 20030801

REACTIONS (2)
  - ANAPHYLACTIC SHOCK [None]
  - GRAFT VERSUS HOST DISEASE [None]
